FAERS Safety Report 7680676-6 (Version None)
Quarter: 2011Q3

REPORT INFORMATION
  Report Type: 
  Country: None (occurrence: None)
  Receive Date: 20110811
  Receipt Date: 20110811
  Transmission Date: 20111222
  Serious: No
  Sender: FDA-Public Use
  Company Number: None

PATIENT
  Sex: Female
  Weight: 87 kg

DRUGS (2)
  1. ZOMETA [Suspect]
     Dosage: 4MG
  2. BEVACIZUMAB [Concomitant]

REACTIONS (1)
  - OSTEONECROSIS OF JAW [None]
